FAERS Safety Report 12998901 (Version 1)
Quarter: 2016Q4

REPORT INFORMATION
  Report Type: Spontaneous
  Country: US (occurrence: US)
  Receive Date: 20161205
  Receipt Date: 20161205
  Transmission Date: 20170207
  Serious: No
  Sender: FDA-Public Use
  Company Number: US-TEVA-711997ACC

PATIENT
  Age: 62 Year
  Sex: Female

DRUGS (9)
  1. COPAXONE [Suspect]
     Active Substance: GLATIRAMER ACETATE
     Indication: MULTIPLE SCLEROSIS
     Route: 058
     Dates: start: 20151020
  2. PROZAC [Concomitant]
     Active Substance: FLUOXETINE HYDROCHLORIDE
  3. LIPITOR [Concomitant]
     Active Substance: ATORVASTATIN CALCIUM
  4. CALCIUM D3 [Concomitant]
     Active Substance: CALCIUM\CHOLECALCIFEROL
  5. NITROFURANTOIN. [Concomitant]
     Active Substance: NITROFURANTOIN
  6. ALEVE [Concomitant]
     Active Substance: NAPROXEN SODIUM
  7. MTV [Concomitant]
  8. GABAPENTIN. [Concomitant]
     Active Substance: GABAPENTIN
  9. METOPROLOL. [Concomitant]
     Active Substance: METOPROLOL

REACTIONS (1)
  - Fall [Unknown]

NARRATIVE: CASE EVENT DATE: 201609
